FAERS Safety Report 26072073 (Version 1)
Quarter: 2025Q4

REPORT INFORMATION
  Report Type: Spontaneous
  Country: EU (occurrence: EU)
  Receive Date: 20251120
  Receipt Date: 20251120
  Transmission Date: 20260117
  Serious: Yes (Life-Threatening, Hospitalization, Other)
  Sender: BOEHRINGER INGELHEIM
  Company Number: None

PATIENT
  Age: 66 Year
  Sex: Female

DRUGS (7)
  1. JARDIANCE [Suspect]
     Active Substance: EMPAGLIFLOZIN
     Indication: Type 2 diabetes mellitus
     Dates: start: 202005, end: 20251031
  2. Hydroxyzine ^Medical Valley^ [Concomitant]
     Indication: Sedative therapy
     Dosage: 12.5 MG MORNING AND NOON. 25 MG AT NIGHT.
  3. Clopidogrel ^Actavis^ [Concomitant]
     Indication: Thrombosis prophylaxis
     Dates: start: 202006
  4. CLOZAPINE [Concomitant]
     Active Substance: CLOZAPINE
     Indication: Schizophrenia
     Dates: start: 202006
  5. CLOZAPINE [Concomitant]
     Active Substance: CLOZAPINE
     Indication: Mental disorder
     Dates: start: 201812
  6. Simvastatin ^KRKA^ [Concomitant]
     Indication: Hypercholesterolaemia
     Dates: start: 202004
  7. Metformin ^Teva B.V.^ [Concomitant]
     Indication: Type 2 diabetes mellitus
     Dates: start: 201601

REACTIONS (7)
  - Ketoacidosis [Recovered/Resolved]
  - General physical health deterioration [Unknown]
  - Rales [Unknown]
  - Respiratory rate increased [Unknown]
  - Cough [Unknown]
  - Dyspnoea [Unknown]
  - Abdominal pain [Unknown]

NARRATIVE: CASE EVENT DATE: 20251001
